FAERS Safety Report 6355630-7 (Version None)
Quarter: 2009Q3

REPORT INFORMATION
  Report Type: 
  Country: None (occurrence: None)
  Receive Date: 20090914
  Receipt Date: 20090903
  Transmission Date: 20100115
  Serious: Yes (Hospitalization)
  Sender: FDA-Public Use
  Company Number: NO-MERCK-0909NOR00003

PATIENT
  Age: 89 Year
  Sex: Female

DRUGS (7)
  1. TIMOPTIC-XE [Suspect]
     Indication: GLAUCOMA
     Route: 048
     Dates: end: 20090101
  2. TIMOPTIC-XE [Suspect]
     Route: 047
  3. QUETIAPINE FUMARATE [Suspect]
     Indication: DELUSIONAL DISORDER, PERSECUTORY TYPE
     Route: 048
     Dates: end: 20090121
  4. FLUNITRAZEPAM [Concomitant]
     Route: 048
     Dates: start: 20090121
  5. FUROSEMIDE [Concomitant]
     Route: 048
     Dates: end: 20090121
  6. OXAZEPAM [Concomitant]
     Route: 048
  7. PILOCARPINE HYDROCHLORIDE [Concomitant]
     Route: 047

REACTIONS (4)
  - EXTRAPYRAMIDAL DISORDER [None]
  - HALLUCINATION [None]
  - INCORRECT ROUTE OF DRUG ADMINISTRATION [None]
  - NEUROLEPTIC MALIGNANT SYNDROME [None]
